FAERS Safety Report 23248950 (Version 1)
Quarter: 2023Q4

REPORT INFORMATION
  Report Type: Spontaneous
  Country: US (occurrence: US)
  Receive Date: 20231201
  Receipt Date: 20231201
  Transmission Date: 20240110
  Serious: No
  Sender: FDA-Public Use
  Company Number: US-GSKCCFUS-Case-01866521_AE-104221

PATIENT
  Sex: Female

DRUGS (3)
  1. TRELEGY ELLIPTA [Suspect]
     Active Substance: FLUTICASONE FUROATE\UMECLIDINIUM BROMIDE\VILANTEROL TRIFENATATE
     Indication: Asthma
     Dosage: UNK, 100/62.5/25MCG
     Route: 055
     Dates: start: 20231103
  2. TRELEGY ELLIPTA [Suspect]
     Active Substance: FLUTICASONE FUROATE\UMECLIDINIUM BROMIDE\VILANTEROL TRIFENATATE
     Indication: Cough
  3. BISOPROLOL FUMARATE/HCTZ [Concomitant]
     Indication: Product used for unknown indication
     Dosage: UNK, 2.5/6.25 MG

REACTIONS (7)
  - Sensation of foreign body [Unknown]
  - Rhinorrhoea [Unknown]
  - Fatigue [Unknown]
  - Back pain [Unknown]
  - Product dose omission issue [Unknown]
  - Labelled drug-drug interaction issue [Unknown]
  - Product use in unapproved indication [Unknown]
